FAERS Safety Report 20602779 (Version 36)
Quarter: 2024Q4

REPORT INFORMATION
  Report Type: Spontaneous
  Country: CA (occurrence: CA)
  Receive Date: 20220316
  Receipt Date: 20241004
  Transmission Date: 20250114
  Serious: Yes (Hospitalization, Other)
  Sender: PFIZER
  Company Number: CA-PFIZER INC-2021574352

PATIENT
  Age: 60 Year
  Sex: Female
  Weight: 129 kg

DRUGS (76)
  1. RUXIENCE [Suspect]
     Active Substance: RITUXIMAB-PVVR
     Indication: Granulomatosis with polyangiitis
     Dosage: 375 MG/M2, WEEKLY, FOR 4 WEEKS
     Route: 042
     Dates: start: 20210513, end: 20210513
  2. RUXIENCE [Suspect]
     Active Substance: RITUXIMAB-PVVR
     Dosage: 375 MG/M2, WEEKLY, FOR 4 WEEKS
     Route: 042
     Dates: start: 20210513, end: 20210513
  3. RUXIENCE [Suspect]
     Active Substance: RITUXIMAB-PVVR
     Dosage: 375 MG/M2, WEEKLY, FOR 4 WEEKS
     Route: 042
     Dates: start: 20210513, end: 20210603
  4. RUXIENCE [Suspect]
     Active Substance: RITUXIMAB-PVVR
     Dosage: 375 MG/M2, 4 WEEKS
     Route: 042
     Dates: start: 20210520, end: 20210520
  5. RUXIENCE [Suspect]
     Active Substance: RITUXIMAB-PVVR
     Dosage: 375 MG/M2, 4 WEEKS
     Route: 042
     Dates: start: 20210527, end: 20210527
  6. RUXIENCE [Suspect]
     Active Substance: RITUXIMAB-PVVR
     Dosage: 375 MG/M2, 4 WEEKS
     Route: 042
     Dates: start: 20210527, end: 20210527
  7. RUXIENCE [Suspect]
     Active Substance: RITUXIMAB-PVVR
     Dosage: 375 MG/M2, 4 WEEKS
     Route: 042
     Dates: start: 20210603, end: 20210603
  8. RUXIENCE [Suspect]
     Active Substance: RITUXIMAB-PVVR
     Dosage: 375 MG/M2, 4 WEEKS
     Route: 042
     Dates: start: 20210603, end: 20210603
  9. RUXIENCE [Suspect]
     Active Substance: RITUXIMAB-PVVR
     Dosage: 862 MG, WEEKLY, FOR 4 WEEKS
     Route: 042
     Dates: start: 20211006, end: 20211027
  10. RUXIENCE [Suspect]
     Active Substance: RITUXIMAB-PVVR
     Dosage: 862 MG, WEEKLY, FOR 4 WEEKS
     Route: 042
     Dates: start: 20211013, end: 20211013
  11. RUXIENCE [Suspect]
     Active Substance: RITUXIMAB-PVVR
     Dosage: 862 MG, WEEKLY, FOR 4 WEEKS
     Route: 042
     Dates: start: 20211027
  12. RUXIENCE [Suspect]
     Active Substance: RITUXIMAB-PVVR
     Dosage: 862 MG, WEEKLY, FOR 4 WEEKS
     Route: 042
     Dates: start: 20211027
  13. RUXIENCE [Suspect]
     Active Substance: RITUXIMAB-PVVR
     Dosage: 862 MG, WEEKLY, FOR 4 WEEKS
     Route: 042
     Dates: start: 20220228, end: 20220228
  14. RUXIENCE [Suspect]
     Active Substance: RITUXIMAB-PVVR
     Dosage: 862 MG, WEEKLY, FOR 4 WEEKS
     Route: 042
     Dates: start: 20220228, end: 20220228
  15. RUXIENCE [Suspect]
     Active Substance: RITUXIMAB-PVVR
     Dosage: 862 MG, WEEKLY, FOR 4 WEEKS
     Route: 042
     Dates: start: 20220228, end: 20220321
  16. RUXIENCE [Suspect]
     Active Substance: RITUXIMAB-PVVR
     Dosage: 862 MG, WEEKLY, FOR 4 WEEKS
     Route: 042
     Dates: start: 20220307
  17. RUXIENCE [Suspect]
     Active Substance: RITUXIMAB-PVVR
     Dosage: 862 MG, WEEKLY, FOR 4 WEEKS
     Route: 042
     Dates: start: 20220321
  18. RUXIENCE [Suspect]
     Active Substance: RITUXIMAB-PVVR
     Dosage: 862 MG, WEEKLY, FOR 4 WEEKS
     Route: 042
     Dates: start: 20220321
  19. RUXIENCE [Suspect]
     Active Substance: RITUXIMAB-PVVR
     Dosage: 862 MG, WEEKLY, FOR 4 WEEKS
     Route: 042
     Dates: start: 20220804
  20. RUXIENCE [Suspect]
     Active Substance: RITUXIMAB-PVVR
     Dosage: 862 MG, WEEKLY, FOR 4 WEEKS
     Route: 042
     Dates: start: 20220804, end: 20220825
  21. RUXIENCE [Suspect]
     Active Substance: RITUXIMAB-PVVR
     Dosage: 862 MG, WEEKLY, FOR 4 WEEKS
     Route: 042
     Dates: start: 20220804
  22. RUXIENCE [Suspect]
     Active Substance: RITUXIMAB-PVVR
     Dosage: 862 MG, WEEKLY, FOR 4 WEEKS
     Route: 042
     Dates: start: 20220804
  23. RUXIENCE [Suspect]
     Active Substance: RITUXIMAB-PVVR
     Dosage: 862 MG, WEEKLY, FOR 4 WEEKS
     Route: 042
     Dates: start: 20220811
  24. RUXIENCE [Suspect]
     Active Substance: RITUXIMAB-PVVR
     Dosage: 862 MG, WEEKLY, FOR 4 WEEKS
     Route: 042
     Dates: start: 20220811
  25. RUXIENCE [Suspect]
     Active Substance: RITUXIMAB-PVVR
     Dosage: 862 MG, WEEKLY, FOR 4 WEEKS
     Route: 042
     Dates: start: 20220817
  26. RUXIENCE [Suspect]
     Active Substance: RITUXIMAB-PVVR
     Dosage: 862 MG, WEEKLY, FOR 4 WEEKS
     Route: 042
     Dates: start: 20220825
  27. RUXIENCE [Suspect]
     Active Substance: RITUXIMAB-PVVR
     Dosage: 862 MG, WEEKLY, FOR 4 WEEKS
     Route: 042
     Dates: start: 20220825
  28. RUXIENCE [Suspect]
     Active Substance: RITUXIMAB-PVVR
     Dosage: 862 MG, WEEKLY, FOR 4 WEEKS
     Route: 042
     Dates: start: 20220825
  29. RUXIENCE [Suspect]
     Active Substance: RITUXIMAB-PVVR
     Dosage: 1000 MG, WEEKLY, FOR 4 WEEKS
     Route: 042
     Dates: start: 20230103, end: 20230124
  30. RUXIENCE [Suspect]
     Active Substance: RITUXIMAB-PVVR
     Dosage: 1000 MG, WEEKLY, FOR 4 WEEKS
     Route: 042
     Dates: start: 20230124
  31. RUXIENCE [Suspect]
     Active Substance: RITUXIMAB-PVVR
     Dosage: 1000 MG, WEEKLY, FOR 4 WEEKS
     Route: 042
     Dates: start: 20230529
  32. RUXIENCE [Suspect]
     Active Substance: RITUXIMAB-PVVR
     Dosage: 1000 MG, ONE DOSE
     Route: 042
     Dates: start: 20230609, end: 20230609
  33. RUXIENCE [Suspect]
     Active Substance: RITUXIMAB-PVVR
     Dosage: 500 MG, WEEKLY, FOR 4 WEEKS(375 MG/M2 X  BSA =  500 MG  X 4 WEEKS = 2 MG), NOT STARTED YET
     Route: 042
  34. RUXIENCE [Suspect]
     Active Substance: RITUXIMAB-PVVR
     Dosage: 500 MG, WEEKLY, FOR 4 WEEKS
     Route: 042
     Dates: start: 20231012, end: 20231110
  35. RUXIENCE [Suspect]
     Active Substance: RITUXIMAB-PVVR
     Dosage: 500 MG, WEEKLY, 4 INFUSIONS, Q4 MONTHS
     Route: 042
     Dates: start: 20240314
  36. RUXIENCE [Suspect]
     Active Substance: RITUXIMAB-PVVR
     Dosage: 500 MG, WEEKLY, 4 INFUSIONS, Q4 MONTHS
     Route: 042
     Dates: start: 20240405
  37. ACETAMINOPHEN [Concomitant]
     Active Substance: ACETAMINOPHEN
     Indication: Premedication
     Dosage: 650 MG
     Dates: start: 20230124, end: 20230124
  38. AMLODIPINE [Concomitant]
     Active Substance: AMLODIPINE BESYLATE
     Dosage: 5 MG
  39. AMLODIPINE [Concomitant]
     Active Substance: AMLODIPINE BESYLATE
     Dosage: UNK
  40. ASPIRIN [Concomitant]
     Active Substance: ASPIRIN
     Dosage: UNK
  41. ASPIRIN [Concomitant]
     Active Substance: ASPIRIN
     Dosage: 81 MG
  42. AMLODIPINE BESYLATE\PERINDOPRIL ERBUMINE [Concomitant]
     Active Substance: AMLODIPINE BESYLATE\PERINDOPRIL ERBUMINE
     Dosage: 4 MG
  43. AMLODIPINE BESYLATE\PERINDOPRIL ERBUMINE [Concomitant]
     Active Substance: AMLODIPINE BESYLATE\PERINDOPRIL ERBUMINE
     Dosage: UNK
  44. DIPHENHYDRAMINE [Concomitant]
     Active Substance: DIPHENHYDRAMINE
     Indication: Premedication
     Dosage: 50 MG
     Dates: start: 20230124, end: 20230124
  45. ERGOCALCIFEROL [Concomitant]
     Active Substance: ERGOCALCIFEROL
     Dosage: 50000 IU
  46. ERGOCALCIFEROL [Concomitant]
     Active Substance: ERGOCALCIFEROL
     Dosage: UNK
  47. FOLIC ACID [Concomitant]
     Active Substance: FOLIC ACID
     Dosage: 5 MG
  48. FOLIC ACID [Concomitant]
     Active Substance: FOLIC ACID
     Dosage: UNK
  49. GABAPENTIN [Concomitant]
     Active Substance: GABAPENTIN
     Dosage: 300 MG
  50. GABAPENTIN [Concomitant]
     Active Substance: GABAPENTIN
     Dosage: UNK
  51. JARDIANCE [Concomitant]
     Active Substance: EMPAGLIFLOZIN
     Dosage: 1 DF, DOSAGE NOT AVAILABLE
  52. JARDIANCE [Concomitant]
     Active Substance: EMPAGLIFLOZIN
     Dosage: 25 MG
  53. JARDIANCE [Concomitant]
     Active Substance: EMPAGLIFLOZIN
     Dosage: 1 DF, DOSAGE NOT AVAILABLE
     Route: 065
  54. OZEMPIC [Concomitant]
     Active Substance: SEMAGLUTIDE
     Dosage: 1 MG
  55. OZEMPIC [Concomitant]
     Active Substance: SEMAGLUTIDE
     Dosage: UNK
  56. PANTOPRAZOLE [Concomitant]
     Active Substance: PANTOPRAZOLE
     Dosage: 40 MG
  57. PANTOPRAZOLE [Concomitant]
     Active Substance: PANTOPRAZOLE
     Dosage: UNK
  58. PREDNISONE [Concomitant]
     Active Substance: PREDNISONE
     Dosage: 50 MG, 1X/DAY
  59. PREDNISONE [Concomitant]
     Active Substance: PREDNISONE
     Dosage: 15 MG, 1X/DAY
  60. PREDNISONE [Concomitant]
     Active Substance: PREDNISONE
     Dosage: 5 MG
  61. PREDNISONE [Concomitant]
     Active Substance: PREDNISONE
     Dosage: 50 MG
  62. PREDNISONE [Concomitant]
     Active Substance: PREDNISONE
     Dosage: 40 MG, 1X/DAY, PO OD
     Route: 048
  63. PREDNISONE [Concomitant]
     Active Substance: PREDNISONE
     Dosage: 30 MG, 1X/DAY
     Route: 048
  64. PREDNISONE [Concomitant]
     Active Substance: PREDNISONE
     Dosage: 20 MG, 1X/DAY, PO OD
     Route: 048
  65. PREDNISONE [Concomitant]
     Active Substance: PREDNISONE
     Dosage: UNK
     Route: 048
  66. RISEDRONATE SODIUM [Concomitant]
     Active Substance: RISEDRONATE SODIUM
     Dosage: 35 MG
  67. RISEDRONATE SODIUM [Concomitant]
     Active Substance: RISEDRONATE SODIUM
     Dosage: UNK
  68. ROSUVASTATIN [Concomitant]
     Active Substance: ROSUVASTATIN
     Dosage: 20 UG
  69. ROSUVASTATIN [Concomitant]
     Active Substance: ROSUVASTATIN
     Dosage: UNK
  70. SOLU-MEDROL [Concomitant]
     Active Substance: METHYLPREDNISOLONE SODIUM SUCCINATE
     Dosage: 100 MG
     Dates: start: 20230124, end: 20230124
  71. SULFAMETHOXAZOLE\TRIMETHOPRIM [Concomitant]
     Active Substance: SULFAMETHOXAZOLE\TRIMETHOPRIM
     Dosage: UNK, 800-160MG 1 PILL EVERY MONDAY - WEDNESDAY AND FRIDAY.
     Route: 048
  72. SUCRALFATE [Concomitant]
     Active Substance: SUCRALFATE
     Dosage: 1 G
  73. SUCRALFATE [Concomitant]
     Active Substance: SUCRALFATE
     Dosage: UNK
  74. TAVNEOS [Concomitant]
     Active Substance: AVACOPAN
     Dosage: UNK
  75. TRAZODONE [Concomitant]
     Active Substance: TRAZODONE HYDROCHLORIDE
     Dosage: 100 MG
  76. TRAZODONE [Concomitant]
     Active Substance: TRAZODONE HYDROCHLORIDE
     Dosage: UNK

REACTIONS (28)
  - Pulmonary mass [Not Recovered/Not Resolved]
  - Lung disorder [Not Recovered/Not Resolved]
  - Pulmonary congestion [Not Recovered/Not Resolved]
  - Pneumonia bacterial [Recovered/Resolved]
  - Lower respiratory tract infection bacterial [Not Recovered/Not Resolved]
  - Subglottic laryngitis [Recovered/Resolved]
  - Weight fluctuation [Recovering/Resolving]
  - Therapeutic response shortened [Unknown]
  - Myalgia [Not Recovered/Not Resolved]
  - Arthritis [Unknown]
  - Cardiac disorder [Not Recovered/Not Resolved]
  - COVID-19 [Recovered/Resolved]
  - Dyspnoea [Not Recovered/Not Resolved]
  - Productive cough [Unknown]
  - Cough [Unknown]
  - Ear infection [Unknown]
  - Malaise [Not Recovered/Not Resolved]
  - Illness [Unknown]
  - Feeling abnormal [Unknown]
  - Stress [Unknown]
  - Blood pressure increased [Unknown]
  - Sinus disorder [Unknown]
  - Body temperature increased [Unknown]
  - Therapeutic response unexpected [Unknown]
  - Off label use [Unknown]
  - Off label use [Unknown]
  - Off label use [Unknown]
  - Intentional product use issue [Unknown]

NARRATIVE: CASE EVENT DATE: 20210101
